FAERS Safety Report 5037194-3 (Version None)
Quarter: 2006Q2

REPORT INFORMATION
  Report Type: 
  Country: None (occurrence: None)
  Receive Date: 20060623
  Receipt Date: 20060612
  Transmission Date: 20061013
  Serious: Yes (Death)
  Sender: FDA-Public Use
  Company Number: DK200606002971

PATIENT
  Age: 56 Year
  Sex: Male
  Weight: 112 kg

DRUGS (17)
  1. PEMETREXED (PEMETREXED) VIAL [Suspect]
     Indication: NON-SMALL CELL LUNG CANCER
     Dosage: 1200 MG, EVERY 3 WEEKS, INTRAVENOUS
     Route: 042
     Dates: start: 20051012
  2. CISPLATIN [Suspect]
     Indication: NON-SMALL CELL LUNG CANCER
     Dosage: 180 MG, 3/W, INTRAVENOUS
     Route: 042
     Dates: start: 20051012
  3. FOLIC ACID [Concomitant]
  4. CYANOCOBALAMIN [Concomitant]
  5. TIOTROPIUM (TIOTROPIUM) [Concomitant]
  6. SERETIDE ^ALLEN + HANBURYS LTD^ (FLUTICASONE PROPIONATE, SALMETEROL) [Concomitant]
  7. ACETAMINOPHEN [Concomitant]
  8. PANTOPRAZOLE SODIUM [Concomitant]
  9. ESOMEPRAZOLE (ESOMEPRAZOLE) [Concomitant]
  10. CIMETIDINE [Concomitant]
  11. DIAZEPAM [Concomitant]
  12. FLUCONAZOLE [Concomitant]
  13. OXYCODONE HCL [Concomitant]
  14. SODIUM PICOSULFATE (SODIUM PICOSULFATE) [Concomitant]
  15. DICILLIN (DICLOXACILLIN SODIUM MONOHYDRATE) [Concomitant]
  16. FUROSEMIDE [Concomitant]
  17. POTASSIUM CHLORIDE [Concomitant]

REACTIONS (1)
  - PULMONARY OEDEMA [None]
